FAERS Safety Report 20667740 (Version 1)
Quarter: 2022Q2

REPORT INFORMATION
  Report Type: Spontaneous
  Country: US (occurrence: US)
  Receive Date: 20220404
  Receipt Date: 20220404
  Transmission Date: 20220721
  Serious: No
  Sender: FDA-Public Use
  Company Number: US-UROGEN PHARMA LTD.-2022-UGN-000011

PATIENT

DRUGS (8)
  1. JELMYTO [Suspect]
     Active Substance: MITOMYCIN
     Indication: Transitional cell cancer of the renal pelvis and ureter
     Dosage: 9 CC, ONE TIMES PER WEEK (INSTILLATION)
     Dates: start: 20210818, end: 20210818
  2. JELMYTO [Suspect]
     Active Substance: MITOMYCIN
     Dosage: 9 CC, ONE TIMES PER WEEK (INSTILLATION)
     Dates: start: 20210827, end: 20210827
  3. JELMYTO [Suspect]
     Active Substance: MITOMYCIN
     Dosage: 9 CC, ONE TIMES PER WEEK (INSTILLATION)
     Dates: start: 20210903, end: 20210903
  4. JELMYTO [Suspect]
     Active Substance: MITOMYCIN
     Dosage: 9 CC, ONE TIMES PER WEEK (INSTILLATION)
     Dates: start: 20210908, end: 20210908
  5. JELMYTO [Suspect]
     Active Substance: MITOMYCIN
     Dosage: 9 CC, ONE TIMES PER WEEK (INSTILLATION)
     Dates: start: 20210915, end: 20210915
  6. JELMYTO [Suspect]
     Active Substance: MITOMYCIN
     Dosage: 9 CC, ONE TIMES PER WEEK (INSTILLATION)
     Dates: start: 20210922, end: 20210922
  7. JELMYTO [Suspect]
     Active Substance: MITOMYCIN
     Dosage: 9 CC, ONE TIMES PER MONTH (INSTILLATION)
     Dates: start: 20220112, end: 20220112
  8. JELMYTO [Suspect]
     Active Substance: MITOMYCIN
     Dosage: 9 CC, ONE TIMES PER MONTH (INSTILLATION)
     Dates: start: 20220209, end: 20220209

REACTIONS (2)
  - Abdominal pain lower [Recovered/Resolved]
  - Abdominal pain lower [Recovering/Resolving]

NARRATIVE: CASE EVENT DATE: 20220112
